FAERS Safety Report 7047207-5 (Version None)
Quarter: 2010Q4

REPORT INFORMATION
  Report Type: 
  Country: None (occurrence: None)
  Receive Date: 20101015
  Receipt Date: 20101004
  Transmission Date: 20110411
  Serious: Yes (Hospitalization)
  Sender: FDA-Public Use
  Company Number: TR-WATSON-2010-13465

PATIENT
  Age: 57 Year
  Sex: Female

DRUGS (10)
  1. ETOPOSIDE (WATSON LABORATORIES) [Suspect]
     Indication: LEUKAEMIA
     Dosage: 200 MG/M2, DAILY (DAYS 8-10)
     Route: 042
  2. PREDNISOLONE [Suspect]
     Indication: LEUKAEMIA
     Dosage: 60 MG/M2 DAY ON DAY 1-28
  3. VINCRISTINE [Suspect]
     Indication: LEUKAEMIA
     Dosage: 1.5 MG/M2 DAYS 1, 8, 15, 22
  4. DAUNORUBICIN HCL [Suspect]
     Indication: LEUKAEMIA
     Dosage: 25 MG/M2 DAYS 1, 8, 15, 22
  5. ELSPAR [Suspect]
     Indication: LEUKAEMIA
     Dosage: 5000 U/M2 DAYS 1-14
  6. CYCLOPHOSPHAMIDE [Suspect]
     Indication: LEUKAEMIA
     Dosage: 650 ,G/M2 PER DAY ON DAYS 29, 43, 57
  7. CYTARABINE [Suspect]
     Indication: LEUKAEMIA
     Dosage: 75 MG/M2 PER DAY ON DAYS 31-34, 38-41, 45-48
  8. MERCAPTOPURINE [Suspect]
     Indication: LEUKAEMIA
     Dosage: 60 MG/M2 PER DAY ON DAYS 1-28
  9. METHOTREXATE [Suspect]
     Indication: LEUKAEMIA
     Dosage: 12 MG ON DAYS 1, 8, 15, 22
     Route: 037
  10. MITOXANTRONE [Suspect]
     Indication: LEUKAEMIA
     Dosage: 12 MG/M2 PER DAY DAYS 1-3

REACTIONS (1)
  - HEPATITIS B [None]
